FAERS Safety Report 9134839 (Version 2)
Quarter: 2013Q2

REPORT INFORMATION
  Report Type: Report from Study
  Country: TZ (occurrence: TZ)
  Receive Date: 20130304
  Receipt Date: 20130628
  Transmission Date: 20140414
  Serious: Yes (Life-Threatening, Hospitalization, Other)
  Sender: FDA-Public Use
  Company Number: TZ-BAYER-2013-023648

PATIENT
  Age: 25 Year
  Sex: Male
  Weight: 55 kg

DRUGS (5)
  1. MOXIFLOXACIN ORAL [Suspect]
     Indication: PULMONARY TUBERCULOSIS
     Dosage: UNK
     Dates: start: 20121130, end: 20130108
  2. DRUGS FOR TREATMENT OF TUBERCULOSIS [Suspect]
     Indication: PULMONARY TUBERCULOSIS
     Dosage: 200 MG, UNK
     Route: 048
     Dates: start: 20121130, end: 20130108
  3. PYRAZINAMIDE [Suspect]
     Dosage: UNK
     Dates: start: 20121130, end: 20130108
  4. PARACETAMOL [Concomitant]
     Dosage: UNK
     Dates: start: 20121130, end: 20121202
  5. GALENIC /FERROUS SULFATE/VITAMIN B1-6-12 [Concomitant]
     Dosage: UNK
     Dates: start: 20121221, end: 20130107

REACTIONS (1)
  - Agranulocytosis [Recovered/Resolved]
